FAERS Safety Report 7207603-X (Version None)
Quarter: 2011Q1

REPORT INFORMATION
  Report Type: 
  Country: None (occurrence: None)
  Receive Date: 20110103
  Receipt Date: 20101221
  Transmission Date: 20110831
  Serious: Yes (Hospitalization)
  Sender: FDA-Public Use
  Company Number: US-ELI_LILLY_AND_COMPANY-US201011002774

PATIENT
  Sex: Male
  Weight: 113.38 kg

DRUGS (4)
  1. BYETTA [Suspect]
     Indication: TYPE 2 DIABETES MELLITUS
     Dosage: 10 UG, 2/D
     Route: 058
     Dates: start: 20101001
  2. NITROGLYCERIN [Concomitant]
     Dosage: UNK, AS NEEDED
  3. CALCIUM [Concomitant]
     Dosage: UNK, MONTHLY (1/M)
  4. SIMVASTATIN [Concomitant]
     Dosage: UNK, DAILY (1/D)
     Route: 048

REACTIONS (3)
  - JOINT INJURY [None]
  - VISUAL ACUITY REDUCED [None]
  - ABASIA [None]
